FAERS Safety Report 8244705-3 (Version None)
Quarter: 2012Q1

REPORT INFORMATION
  Report Type: 
  Country: None (occurrence: None)
  Receive Date: 20120329
  Receipt Date: 20110204
  Transmission Date: 20120608
  Serious: No
  Sender: FDA-Public Use
  Company Number: US-MYLANLABS-2011S1002711

PATIENT
  Age: 55 Year
  Sex: Female

DRUGS (3)
  1. LISINOPRIL [Concomitant]
     Indication: BLOOD PRESSURE INCREASED
     Dates: start: 20100101
  2. FENTANYL-100 [Suspect]
     Indication: BACK PAIN
     Dosage: CHANGED Q. 48 HOURS.
     Route: 062
     Dates: start: 20070101
  3. ROBAXIN [Concomitant]
     Indication: MUSCLE SPASMS

REACTIONS (3)
  - DRUG WITHDRAWAL SYNDROME [None]
  - TREMOR [None]
  - BACK PAIN [None]
